FAERS Safety Report 7581558-0 (Version None)
Quarter: 2011Q2

REPORT INFORMATION
  Report Type: 
  Country: None (occurrence: None)
  Receive Date: 20110629
  Receipt Date: 20110622
  Transmission Date: 20111010
  Serious: Yes (Hospitalization)
  Sender: FDA-Public Use
  Company Number: PHHY2011US48787

PATIENT
  Age: 11 Year
  Sex: Female

DRUGS (2)
  1. PULMOZYME [Concomitant]
     Dosage: 2.5 ML, QD
  2. TOBI [Suspect]
     Dosage: 300 MG, BID VIA NEBULIZER IN A CYCLE OF 28 DAYS ON AND 28 DAYS OFF
     Dates: start: 20110209, end: 20110405

REACTIONS (2)
  - INFECTIVE PULMONARY EXACERBATION OF CYSTIC FIBROSIS [None]
  - LUNG INFECTION [None]
